FAERS Safety Report 24761472 (Version 1)
Quarter: 2024Q4

REPORT INFORMATION
  Report Type: Spontaneous
  Country: US (occurrence: US)
  Receive Date: 20241220
  Receipt Date: 20241220
  Transmission Date: 20250115
  Serious: No
  Sender: MERCK
  Company Number: US-009507513-2412USA005194

PATIENT
  Age: 81 Year
  Sex: Male

DRUGS (1)
  1. KEYTRUDA [Suspect]
     Active Substance: PEMBROLIZUMAB
     Indication: Melanoma recurrent
     Dosage: 200 MILLIGRAM, Q3W
     Route: 042
     Dates: start: 202109, end: 202110

REACTIONS (2)
  - Drug resistance [Unknown]
  - Product use issue [Unknown]

NARRATIVE: CASE EVENT DATE: 20210901
